FAERS Safety Report 7775449-X (Version None)
Quarter: 2011Q3

REPORT INFORMATION
  Report Type: 
  Country: None (occurrence: None)
  Receive Date: 20110923
  Receipt Date: 20110920
  Transmission Date: 20111222
  Serious: Yes (Other)
  Sender: FDA-Public Use
  Company Number: PHHY2011DE83634

PATIENT
  Sex: Female

DRUGS (2)
  1. METOPROLOL TARTRATE [Concomitant]
  2. FEMARA [Suspect]
     Indication: BREAST CANCER
     Dosage: 1 DF, UNK
     Route: 048

REACTIONS (7)
  - MONOPARESIS [None]
  - ABASIA [None]
  - BLADDER DISORDER [None]
  - POLYNEUROPATHY [None]
  - MUSCULAR WEAKNESS [None]
  - MUSCLE TWITCHING [None]
  - MUSCLE SPASMS [None]
